FAERS Safety Report 19167102 (Version 4)
Quarter: 2022Q1

REPORT INFORMATION
  Report Type: Report from Study
  Country: US (occurrence: US)
  Receive Date: 20210422
  Receipt Date: 20220324
  Transmission Date: 20220423
  Serious: Yes (Hospitalization)
  Sender: FDA-Public Use
  Company Number: US-INSMED, INC.-2021-08068-US

PATIENT
  Sex: Male

DRUGS (13)
  1. ARIKAYCE [Suspect]
     Active Substance: AMIKACIN
     Indication: Mycobacterium avium complex infection
     Dosage: 590 MILLIGRAM, QD
     Route: 055
     Dates: start: 201908
  2. ARIKAYCE [Suspect]
     Active Substance: AMIKACIN
     Dosage: 590 UNK, 3-4 TIMES A WEEK
     Route: 055
     Dates: start: 20200520, end: 20211203
  3. ALBUTEROL [Concomitant]
     Active Substance: ALBUTEROL
     Indication: Mycobacterium avium complex infection
     Dosage: 2.5MG, 3ML, TID
     Route: 055
  4. NORVASC [Concomitant]
     Active Substance: AMLODIPINE BESYLATE
     Indication: Essential hypertension
     Dosage: 10 MILLIGRAM, ONE TABLET BY MOUTH DAILY
     Route: 048
  5. NORVASC [Concomitant]
     Active Substance: AMLODIPINE BESYLATE
     Indication: Mycobacterium avium complex infection
  6. ETHAMBUTOL [Concomitant]
     Active Substance: ETHAMBUTOL HYDROCHLORIDE
     Indication: Essential hypertension
     Dosage: 900 MILLIGRAM, QD
     Route: 065
  7. ETHAMBUTOL [Concomitant]
     Active Substance: ETHAMBUTOL HYDROCHLORIDE
     Indication: Mycobacterium avium complex infection
  8. RIFAMPIN [Concomitant]
     Active Substance: RIFAMPIN
     Indication: Mycobacterium avium complex infection
     Dosage: 2 CAPSULES BY MOUTH DAILY
     Route: 048
  9. INCRUSE ELLIPTA [Concomitant]
     Active Substance: UMECLIDINIUM BROMIDE
     Indication: Essential hypertension
     Dosage: 1 PUFF INTO LUNGS, QD
     Route: 055
  10. INCRUSE ELLIPTA [Concomitant]
     Active Substance: UMECLIDINIUM BROMIDE
     Indication: Mycobacterium avium complex infection
  11. AMIKACIN [Concomitant]
     Active Substance: AMIKACIN
     Indication: Mycobacterium avium complex infection
     Dosage: 800 MILLIGRAM, TIW
     Route: 042
     Dates: start: 2021
  12. AMIKACIN [Concomitant]
     Active Substance: AMIKACIN
     Indication: Haemoptysis
  13. AMIKACIN [Concomitant]
     Active Substance: AMIKACIN
     Indication: Disseminated mycobacterium avium complex infection

REACTIONS (7)
  - Pulmonary cavitation [Recovered/Resolved]
  - Pulmonary arteriovenous fistula [Unknown]
  - Haemoptysis [Unknown]
  - Haemoptysis [Unknown]
  - Dyspnoea [Unknown]
  - Off label use [Unknown]
  - Therapy interrupted [Unknown]

NARRATIVE: CASE EVENT DATE: 20210101
